FAERS Safety Report 22356292 (Version 1)
Quarter: 2023Q2

REPORT INFORMATION
  Report Type: Spontaneous
  Country: CA (occurrence: CA)
  Receive Date: 20230523
  Receipt Date: 20230523
  Transmission Date: 20230721
  Serious: Yes (Hospitalization, Other)
  Sender: FDA-Public Use
  Company Number: CA-HLS-202301239

PATIENT
  Sex: Female

DRUGS (29)
  1. ATIVAN [Concomitant]
     Active Substance: LORAZEPAM
     Indication: Product used for unknown indication
     Dosage: AMOUNT: 1 MILLIGRAM?NOT SPECIFIED DOSAGE FORM
     Route: 065
  2. CALCIUM CARBONATE\CHOLECALCIFEROL [Concomitant]
     Active Substance: CALCIUM CARBONATE\CHOLECALCIFEROL
     Indication: Product used for unknown indication
     Dosage: AMOUNT: 1000 IU (INTERNATIONAL UNIT)
     Route: 065
  3. CLOZAPINE [Suspect]
     Active Substance: CLOZAPINE
     Indication: Schizoaffective disorder
     Dosage: AMOUNT: 300 MILLIGRAM
     Route: 065
  4. CLOZAPINE [Suspect]
     Active Substance: CLOZAPINE
     Indication: Schizophrenia
     Dosage: AMOUNT: 300 MILLIGRAM
     Route: 065
  5. CLOZAPINE [Suspect]
     Active Substance: CLOZAPINE
     Indication: Schizoaffective disorder
     Dosage: AMOUNT: 375 MILLIGRAM
     Route: 048
  6. CLOZAPINE [Suspect]
     Active Substance: CLOZAPINE
     Indication: Schizophrenia
     Dosage: AMOUNT: 375 MILLIGRAM
     Route: 048
  7. CLOZAPINE [Suspect]
     Active Substance: CLOZAPINE
     Indication: Schizoaffective disorder
     Dosage: AMOUNT: 400 MILLIGRAM?TABLETS DOSAGE FORM
     Route: 048
  8. CLOZAPINE [Suspect]
     Active Substance: CLOZAPINE
     Indication: Schizophrenia
     Dosage: AMOUNT: 400 MILLIGRAM?TABLETS DOSAGE FORM
     Route: 048
  9. DECADRON [Concomitant]
     Active Substance: DEXAMETHASONE
     Indication: Product used for unknown indication
     Dosage: AMOUNT: 4 MILLIGRAM?NOT SPECIFIED DOSAGE FORM
     Route: 065
  10. FEMARA [Concomitant]
     Active Substance: LETROZOLE
     Indication: Product used for unknown indication
     Dosage: AMOUNT: 2.5 MILLIGRAM?TABLETS DOSAGE FORM
     Route: 065
  11. FUROSEMIDE [Concomitant]
     Active Substance: FUROSEMIDE
     Indication: Product used for unknown indication
     Dosage: AMOUNT: 20 MILLIGRAM?NOT SPECIFIED DOSAGE FORM
     Route: 065
  12. HABITROL [Concomitant]
     Active Substance: NICOTINE
     Indication: Product used for unknown indication
     Dosage: AMOUNT: 21 MILLIGRAM?PATCH DOSAGE FORM
     Route: 065
  13. IMODIUM [Concomitant]
     Active Substance: LOPERAMIDE HYDROCHLORIDE
     Indication: Product used for unknown indication
     Dosage: AMOUNT: 4 MILLIGRAM?NOT SPECIFIED DOSAGE FORM
     Route: 065
  14. POLYETHYLENE GLYCOL 3350 [Concomitant]
     Active Substance: POLYETHYLENE GLYCOL 3350
     Indication: Product used for unknown indication
     Dosage: AMOUNT: 15 ML
     Route: 065
  15. NICODERM CQ [Concomitant]
     Active Substance: NICOTINE
     Indication: Product used for unknown indication
     Dosage: AMOUNT: 21 MILLIGRAM?PATCH DOSAGE FORM
     Route: 065
  16. NICORETTE [Concomitant]
     Active Substance: NICOTINE
     Indication: Product used for unknown indication
     Dosage: AMOUNT: 4 MILLIGRAM?NOT SPECIFIED DOSAGE FORM
     Route: 065
  17. PROPRANOLOL HYDROCHLORIDE [Concomitant]
     Active Substance: PROPRANOLOL HYDROCHLORIDE
     Indication: Product used for unknown indication
     Dosage: AMOUNT: 5 MILLIGRAM
     Route: 065
  18. RIBOCICLIB [Concomitant]
     Active Substance: RIBOCICLIB
     Indication: Product used for unknown indication
     Dosage: AMOUNT: 400 MILLIGRAM?THERAPY DURATION: 21 DAYS
     Route: 048
  19. RIBOCICLIB [Concomitant]
     Active Substance: RIBOCICLIB
     Indication: Product used for unknown indication
     Dosage: AMOUNT: 600 MILLIGRAM?THERAPY DURATION: 21 DAYS
     Route: 048
  20. RIBOCICLIB [Concomitant]
     Active Substance: RIBOCICLIB
     Indication: Product used for unknown indication
     Dosage: THERAPY DURATION: 7 DAYS
     Route: 048
  21. SELENIUM [Concomitant]
     Active Substance: SELENIUM
     Indication: Product used for unknown indication
     Dosage: AMOUNT: 50 MICROGRAM?NOT SPECIFIED DOSAGE FORM
     Route: 065
  22. VALPROATE SODIUM [Concomitant]
     Active Substance: VALPROATE SODIUM
     Indication: Product used for unknown indication
     Dosage: AMOUNT: 500 MILLIGRAM
     Route: 065
  23. SPIRIVA [Concomitant]
     Active Substance: TIOTROPIUM BROMIDE MONOHYDRATE
     Indication: Product used for unknown indication
     Dosage: NOT SPECIFIED DOSAGE FORM
     Route: 065
  24. PROCHLORPERAZINE [Concomitant]
     Active Substance: PROCHLORPERAZINE
     Indication: Product used for unknown indication
     Dosage: AMOUNT: 10 MILLIGRAM?NOT SPECIFIED DOSAGE FORM
     Route: 065
  25. SUCRALFATE [Concomitant]
     Active Substance: SUCRALFATE
     Indication: Product used for unknown indication
     Dosage: AMOUNT: 1 GRAM?NOT SPECIFIED DOSAGE FORM
     Route: 065
  26. TYLENOL [Concomitant]
     Active Substance: ACETAMINOPHEN
     Indication: Product used for unknown indication
     Dosage: AMOUNT: 650 MILLIGRAM?NOT SPECIFIED DOSAGE FORM
     Route: 065
  27. VENTOLIN [Concomitant]
     Active Substance: ALBUTEROL SULFATE
     Indication: Product used for unknown indication
     Dosage: NOT SPECIFIED DOSAGE FORM
     Route: 065
  28. ZINC GLUCONATE [Concomitant]
     Active Substance: ZINC GLUCONATE
     Indication: Product used for unknown indication
     Dosage: AMOUNT: 10 MILLIGRAM
     Route: 065
  29. ZOMETA [Concomitant]
     Active Substance: ZOLEDRONIC ACID
     Indication: Product used for unknown indication
     Dosage: AMOUNT: 4 MILLIGRAM?SOLUTION INTRAVENOUS DOSAGE FORM
     Route: 065

REACTIONS (5)
  - Breast cancer stage IV [None]
  - Chronic obstructive pulmonary disease [None]
  - Metastatic neoplasm [None]
  - Pneumonia [None]
  - Product blister packaging issue [None]
